FAERS Safety Report 19743539 (Version 1)
Quarter: 2021Q3

REPORT INFORMATION
  Report Type: Spontaneous
  Country: JP (occurrence: JP)
  Receive Date: 20210824
  Receipt Date: 20210824
  Transmission Date: 20211014
  Serious: Yes (Life-Threatening)
  Sender: FDA-Public Use
  Company Number: JP-009507513-2108JPN001304J

PATIENT
  Age: 44 Year
  Sex: Male
  Weight: 84 kg

DRUGS (5)
  1. ULTIVA [Concomitant]
     Active Substance: REMIFENTANIL HYDROCHLORIDE
     Dosage: UNK
     Route: 042
     Dates: start: 20210811, end: 20210811
  2. ROCURONIUM BROMIDE. [Concomitant]
     Active Substance: ROCURONIUM BROMIDE
     Dosage: UNK
     Route: 042
     Dates: start: 20210811, end: 20210811
  3. BRIDION [Suspect]
     Active Substance: SUGAMMADEX
     Indication: INTERVERTEBRAL DISC PROTRUSION
     Dosage: 200 MILLIGRAM, QD
     Route: 042
     Dates: start: 20210811, end: 20210811
  4. PROPOFOL. [Concomitant]
     Active Substance: PROPOFOL
     Dosage: UNK
     Route: 042
     Dates: start: 20210811, end: 20210811
  5. FENTANYL [FENTANYL CITRATE] [Concomitant]
     Active Substance: FENTANYL CITRATE
     Dosage: UNK
     Route: 042
     Dates: start: 20210811, end: 20210811

REACTIONS (1)
  - Anaphylactic shock [Recovered/Resolved]

NARRATIVE: CASE EVENT DATE: 20210811
